FAERS Safety Report 20084112 (Version 2)
Quarter: 2022Q1

REPORT INFORMATION
  Report Type: Spontaneous
  Country: CA (occurrence: CA)
  Receive Date: 20211118
  Receipt Date: 20220117
  Transmission Date: 20220423
  Serious: Yes (Other)
  Sender: FDA-Public Use
  Company Number: CA-PFIZER INC-202101563066

PATIENT
  Age: 13 Year
  Sex: Female

DRUGS (1)
  1. ENBREL [Suspect]
     Active Substance: ETANERCEPT
     Indication: Juvenile idiopathic arthritis
     Dosage: 50 MG , WEEKLY
     Route: 058
     Dates: start: 2004, end: 200605

REACTIONS (3)
  - Neuropathy peripheral [Unknown]
  - Tremor [Unknown]
  - Vision blurred [Unknown]

NARRATIVE: CASE EVENT DATE: 20060101
